FAERS Safety Report 15616993 (Version 1)
Quarter: 2018Q4

REPORT INFORMATION
  Report Type: Spontaneous
  Country: IR (occurrence: IR)
  Receive Date: 20181114
  Receipt Date: 20181114
  Transmission Date: 20190205
  Serious: Yes (Other)
  Sender: FDA-Public Use
  Company Number: IR-LPDUSPRD-20182163

PATIENT
  Age: 27 Year
  Sex: Female

DRUGS (1)
  1. FERINJECT [Suspect]
     Active Substance: FERRIC CARBOXYMALTOSE
     Dosage: 500 MG
     Route: 040
     Dates: end: 2018

REACTIONS (2)
  - Eczema [Unknown]
  - Apnoea [Unknown]
